FAERS Safety Report 13886785 (Version 1)
Quarter: 2017Q3

REPORT INFORMATION
  Report Type: Spontaneous
  Country: US (occurrence: US)
  Receive Date: 20170821
  Receipt Date: 20170821
  Transmission Date: 20171127
  Serious: Yes (Death)
  Sender: FDA-Public Use
  Company Number: PHEH2017US026498

PATIENT
  Sex: Male

DRUGS (4)
  1. AMIODARONE HYDROCHLORIDE. [Suspect]
     Active Substance: AMIODARONE HYDROCHLORIDE
     Indication: ATRIAL FIBRILLATION
     Route: 065
  2. AMIODARONE HYDROCHLORIDE. [Suspect]
     Active Substance: AMIODARONE HYDROCHLORIDE
     Indication: ATRIAL FIBRILLATION
     Dosage: 200 MG, UNK
     Route: 048
     Dates: start: 200903
  3. AMIODARONE ZYDUS [Suspect]
     Active Substance: AMIODARONE
     Indication: ATRIAL FIBRILLATION
     Route: 065
  4. AMIODARONE TEVA [Suspect]
     Active Substance: AMIODARONE
     Indication: ATRIAL FIBRILLATION
     Route: 065

REACTIONS (14)
  - Pulmonary toxicity [Fatal]
  - Fatigue [Fatal]
  - Oedema [Unknown]
  - Wheezing [Fatal]
  - Pleural effusion [Fatal]
  - Dyspnoea [Fatal]
  - Product use in unapproved indication [Unknown]
  - Asthenia [Fatal]
  - Weight fluctuation [Unknown]
  - Weight decreased [None]
  - Anxiety [Unknown]
  - General physical health deterioration [Unknown]
  - Gait disturbance [Unknown]
  - Irritability [Unknown]

NARRATIVE: CASE EVENT DATE: 201203
